FAERS Safety Report 26000933 (Version 1)
Quarter: 2025Q4

REPORT INFORMATION
  Report Type: Report from Study
  Country: None (occurrence: TW)
  Receive Date: 20251105
  Receipt Date: 20251105
  Transmission Date: 20260118
  Serious: Yes (Death)
  Sender: ALNYLAM PHARMACEUTICALS
  Company Number: TW-ALNYLAM PHARMACEUTICALS, INC.-ALN-2025-006870

PATIENT
  Age: 77 Year

DRUGS (2)
  1. ONPATTRO [Suspect]
     Active Substance: PATISIRAN SODIUM
     Indication: Hereditary neuropathic amyloidosis
     Dosage: 12.6 MILLIGRAM
  2. ONPATTRO [Suspect]
     Active Substance: PATISIRAN SODIUM
     Dosage: 12.6 MILLIGRAM

REACTIONS (4)
  - Cardiac arrest [Fatal]
  - Cardiac amyloidosis [Fatal]
  - Autonomic nervous system imbalance [Fatal]
  - Respiratory acidosis [Fatal]
